FAERS Safety Report 9102473 (Version 3)
Quarter: 2013Q2

REPORT INFORMATION
  Report Type: Report from Study
  Country: DE (occurrence: DE)
  Receive Date: 20130220
  Receipt Date: 20130410
  Transmission Date: 20140414
  Serious: Yes (Death, Life-Threatening, Hospitalization)
  Sender: FDA-Public Use
  Company Number: DE-B.I. PHARMACEUTICALS,INC./RIDGEFIELD-2013-DE-00386DE

PATIENT
  Age: 73 Year
  Sex: Male

DRUGS (13)
  1. PRADAXA [Suspect]
     Indication: ATRIAL FIBRILLATION
     Dosage: 300 MG
     Dates: start: 20121116
  2. CLOPIDOGREL [Concomitant]
     Dosage: 75 NR
     Dates: end: 20130220
  3. ASS [Concomitant]
     Dosage: 100 NR
  4. L-THYROXIN [Concomitant]
     Dosage: 50 NR
  5. RAMIPRIL [Concomitant]
     Dosage: 2.5 NR
  6. NEBILET [Concomitant]
     Dosage: 2.5 NR
  7. SIMVASTATIN [Concomitant]
     Dosage: 40 NR
  8. DEKRISTOL [Concomitant]
     Dosage: DEKRISTOL 8: 2 PER WEEKS
  9. SPIRIVA RESPIMAT [Concomitant]
     Dosage: 2.5 MCG
     Route: 055
  10. SALBUHEXAL N [Concomitant]
     Route: 055
  11. TORASEMID [Concomitant]
     Dosage: 30 NR
  12. FOLSAN [Concomitant]
     Dosage: 5 MG
  13. FERLECIT [Concomitant]
     Dosage: 4 RT

REACTIONS (1)
  - Haemorrhagic diathesis [Fatal]
